FAERS Safety Report 7150196-6 (Version None)
Quarter: 2010Q4

REPORT INFORMATION
  Report Type: 
  Country: None (occurrence: None)
  Receive Date: 20101210
  Receipt Date: 20101206
  Transmission Date: 20110411
  Serious: Yes (Other)
  Sender: FDA-Public Use
  Company Number: KR-BRISTOL-MYERS SQUIBB COMPANY-15423312

PATIENT

DRUGS (1)
  1. SPRYCEL [Suspect]
     Dosage: FORMULATION:TABS INTER FOR 2 WKS RESTARTED
     Route: 048

REACTIONS (1)
  - DEAFNESS [None]
